FAERS Safety Report 24749640 (Version 8)
Quarter: 2025Q2

REPORT INFORMATION
  Report Type: Spontaneous
  Country: PA (occurrence: PA)
  Receive Date: 20241218
  Receipt Date: 20250421
  Transmission Date: 20250716
  Serious: No
  Sender: PFIZER
  Company Number: PA-PFIZER INC-PV202400160704

PATIENT
  Age: 22 Year
  Sex: Male

DRUGS (1)
  1. GENOTROPIN [Suspect]
     Active Substance: SOMATROPIN
     Dosage: UNK UNK, DAILY
     Route: 058

REACTIONS (7)
  - Drug dose omission by device [Recovering/Resolving]
  - Expired device used [Recovering/Resolving]
  - Device use error [Recovering/Resolving]
  - Device physical property issue [Recovering/Resolving]
  - Device information output issue [Recovering/Resolving]
  - Device mechanical issue [Recovering/Resolving]
  - Device power source issue [Recovering/Resolving]
